FAERS Safety Report 8970882 (Version 1)
Quarter: 2012Q4

REPORT INFORMATION
  Report Type: 
  Country: JP (occurrence: JP)
  Receive Date: 20121218
  Receipt Date: 20121218
  Transmission Date: 20130627
  Serious: Yes (Hospitalization)
  Sender: FDA-Public Use
  Company Number: US-MERCK-1212JPN002867

PATIENT
  Age: 72 Year
  Sex: Male
  Weight: 52 kg

DRUGS (7)
  1. GLACTIV [Suspect]
     Indication: DIABETES MELLITUS
     Dosage: 25 mg, qd
     Route: 048
     Dates: start: 20110304, end: 20110520
  2. LIPITOR [Suspect]
     Indication: DYSLIPIDAEMIA
     Dosage: 10 mg, qd
     Route: 048
     Dates: start: 20110302, end: 20110518
  3. OLMETEC [Suspect]
     Indication: HYPERTENSION
     Dosage: 10 mg, qd
     Route: 048
     Dates: start: 20110302, end: 20110520
  4. CLOPIDOGREL [Suspect]
     Dosage: 300mg/75mg, qd
     Route: 048
     Dates: start: 20110301, end: 20110520
  5. TAKEPRON [Suspect]
     Indication: GASTRITIS PROPHYLAXIS
     Dosage: 15 mg, qd
     Route: 048
     Dates: start: 20110302, end: 20110523
  6. BAYASPIRIN [Concomitant]
     Indication: ANGINA UNSTABLE
     Dosage: 100 mg, qd
     Route: 048
     Dates: start: 20110301
  7. ALVESCO [Concomitant]
     Indication: ASTHMA
     Dosage: 200 Microgram, qd
     Route: 048

REACTIONS (3)
  - Pruritus [Recovering/Resolving]
  - Eczema [Recovering/Resolving]
  - Drug eruption [Recovered/Resolved]
